FAERS Safety Report 10769203 (Version 4)
Quarter: 2015Q2

REPORT INFORMATION
  Report Type: Spontaneous
  Country: JP (occurrence: JP)
  Receive Date: 20150206
  Receipt Date: 20150529
  Transmission Date: 20150821
  Serious: Yes (Other)
  Sender: FDA-Public Use
  Company Number: JP-BAYER-2015-014180

PATIENT
  Age: 47 Year
  Sex: Female

DRUGS (1)
  1. MIRENA [Suspect]
     Active Substance: LEVONORGESTREL
     Indication: MENORRHAGIA
     Dosage: 20 MCG/24HR, CONT
     Route: 015
     Dates: start: 20150109, end: 20150129

REACTIONS (3)
  - Uterine leiomyoma [Not Recovered/Not Resolved]
  - Device dislocation [Recovered/Resolved]
  - Uterine myoma expulsion [Unknown]

NARRATIVE: CASE EVENT DATE: 20150129
